FAERS Safety Report 8772641 (Version 3)
Quarter: 2013Q1

REPORT INFORMATION
  Report Type: Spontaneous
  Country: US (occurrence: US)
  Receive Date: 20120905
  Receipt Date: 20130111
  Transmission Date: 20140127
  Serious: Yes (Hospitalization)
  Sender: FDA-Public Use
  Company Number: US-BAYER-2012-090741

PATIENT
  Age: 42 Year
  Sex: Female

DRUGS (5)
  1. YAZ [Suspect]
  2. CITALOPRAM [Concomitant]
     Dosage: UNK
     Dates: start: 20080220, end: 20080717
  3. NITROFURANT MACRO [Concomitant]
     Dosage: UNK
     Dates: start: 20080418
  4. IBUPROFEN [Concomitant]
     Dosage: UNK
     Dates: start: 20080524
  5. OXYCODONE [Concomitant]
     Dosage: UNK
     Dates: start: 20080524

REACTIONS (4)
  - Deep vein thrombosis [None]
  - Pelvic venous thrombosis [None]
  - Thrombophlebitis superficial [None]
  - Vena cava thrombosis [None]
